FAERS Safety Report 5911196-4 (Version None)
Quarter: 2008Q4

REPORT INFORMATION
  Report Type: 
  Country: None (occurrence: None)
  Receive Date: 20081007
  Receipt Date: 20080624
  Transmission Date: 20090506
  Serious: No
  Sender: FDA-Public Use
  Company Number: US-BRISTOL-MYERS SQUIBB COMPANY-14242572

PATIENT
  Age: 52 Year
  Sex: Male

DRUGS (3)
  1. AVAPRO [Suspect]
     Dosage: REDUCED TO 150MG DAILY
  2. LISINOPRIL [Suspect]
  3. KETEK [Suspect]

REACTIONS (1)
  - DIZZINESS POSTURAL [None]
